FAERS Safety Report 23029806 (Version 1)
Quarter: 2023Q4

REPORT INFORMATION
  Report Type: Spontaneous
  Country: JP (occurrence: JP)
  Receive Date: 20231004
  Receipt Date: 20231004
  Transmission Date: 20240110
  Serious: Yes (Other)
  Sender: FDA-Public Use
  Company Number: JP-Eisai-202307438_DVG_P_1

PATIENT
  Age: 30 Year
  Sex: Male

DRUGS (1)
  1. DAYVIGO [Suspect]
     Active Substance: LEMBOREXANT
     Indication: Product used for unknown indication
     Route: 048

REACTIONS (3)
  - Seizure [Unknown]
  - Cold sweat [Unknown]
  - Dizziness [Unknown]
